FAERS Safety Report 16494884 (Version 1)
Quarter: 2019Q2

REPORT INFORMATION
  Report Type: Spontaneous
  Country: US (occurrence: US)
  Receive Date: 20190628
  Receipt Date: 20190628
  Transmission Date: 20190711
  Serious: Yes (Other)
  Sender: FDA-Public Use
  Company Number: US-PFIZER INC-2019265341

PATIENT
  Age: 52 Year
  Sex: Female
  Weight: 84 kg

DRUGS (1)
  1. SOMAVERT [Suspect]
     Active Substance: PEGVISOMANT
     Indication: ACROMEGALY
     Dosage: 40 MG, UNK
     Route: 058
     Dates: start: 20190429

REACTIONS (2)
  - Ovarian mass [Not Recovered/Not Resolved]
  - Cervix carcinoma [Not Recovered/Not Resolved]

NARRATIVE: CASE EVENT DATE: 20190515
